FAERS Safety Report 8100162-9 (Version None)
Quarter: 2012Q1

REPORT INFORMATION
  Report Type: 
  Country: None (occurrence: None)
  Receive Date: 20120129
  Receipt Date: 20111128
  Transmission Date: 20120608
  Serious: No
  Sender: FDA-Public Use
  Company Number: US-ABBOTT-11P-163-0844997-00

PATIENT
  Age: 61 Year
  Sex: Male

DRUGS (8)
  1. HUMIRA [Suspect]
     Dosage: 40 MG EOW
     Dates: start: 20110807
  2. MEDICATION THAT IS COMBINATION OF T3 AND T4 [Concomitant]
     Indication: THYROID DISORDER
  3. ATENOLOL [Concomitant]
     Indication: PRODUCT USED FOR UNKNOWN INDICATION
  4. UROCIT-K [Concomitant]
     Indication: NEPHROLITHIASIS
     Dosage: 15 MEQ (1620 MG)
  5. LOMOTIL [Concomitant]
     Indication: PRODUCT USED FOR UNKNOWN INDICATION
  6. HUMIRA [Suspect]
     Indication: CROHN'S DISEASE
     Dosage: 4 INJECTIONS, 80 MG PART OF LOADING DOSE
     Route: 058
     Dates: start: 20110708, end: 20110708
  7. ENTOCORT EC [Concomitant]
     Indication: PRODUCT USED FOR UNKNOWN INDICATION
  8. PENTASA [Concomitant]
     Indication: PRODUCT USED FOR UNKNOWN INDICATION
     Dosage: 10 TABLETS PER DAY

REACTIONS (9)
  - CARDIAC FIBRILLATION [None]
  - MYALGIA [None]
  - ARTHRALGIA [None]
  - DRUG DOSE OMISSION [None]
  - VOMITING [None]
  - HYPERHIDROSIS [None]
  - FEELING ABNORMAL [None]
  - NAUSEA [None]
  - INFLUENZA LIKE ILLNESS [None]
